FAERS Safety Report 5034448-1 (Version None)
Quarter: 2006Q2

REPORT INFORMATION
  Report Type: 
  Country: None (occurrence: None)
  Receive Date: 20060626
  Receipt Date: 20050509
  Transmission Date: 20061013
  Serious: Yes (Other)
  Sender: FDA-Public Use
  Company Number: US-MERCK-0505USA01047

PATIENT
  Age: 76 Year
  Sex: Female
  Weight: 36 kg

DRUGS (10)
  1. FOSAMAX [Suspect]
     Indication: OSTEOPOROSIS
     Route: 048
     Dates: start: 20010101
  2. KENALOG [Concomitant]
     Indication: NERVOUS SYSTEM DISORDER
     Route: 051
  3. SYNTHROID [Concomitant]
     Indication: HYPOTHYROIDISM
     Route: 048
  4. RESTORIL [Concomitant]
     Route: 065
  5. DARVOCET [Concomitant]
     Indication: ARTHRITIS
     Route: 065
  6. SOMA [Concomitant]
     Route: 065
  7. METOPROLOL [Concomitant]
     Indication: HYPERTENSION
     Route: 048
  8. ANTIVERT [Concomitant]
     Route: 065
  9. CARDURA [Concomitant]
     Indication: HYPERTENSION
     Route: 048
  10. VALIUM [Concomitant]
     Indication: ANXIETY
     Route: 048

REACTIONS (2)
  - OSTEONECROSIS [None]
  - STAPHYLOCOCCAL INFECTION [None]
